FAERS Safety Report 19226181 (Version 1)
Quarter: 2021Q2

REPORT INFORMATION
  Report Type: Spontaneous
  Country: US (occurrence: US)
  Receive Date: 20210506
  Receipt Date: 20210506
  Transmission Date: 20210717
  Serious: Yes (Hospitalization)
  Sender: FDA-Public Use
  Company Number: US-ROCHE-2805635

PATIENT
  Age: 60 Year
  Sex: Male
  Weight: 66.8 kg

DRUGS (11)
  1. COTELLIC [Suspect]
     Active Substance: COBIMETINIB
     Indication: PANCREATIC CARCINOMA
     Dosage: FOR 21 DAYS OF THE 28 DAYS OF VEMURAFENIB THERAPY
     Route: 048
  2. DOLOPHINE [Concomitant]
     Active Substance: METHADONE HYDROCHLORIDE
     Indication: PAIN
     Dosage: Q8H ? PRN
  3. CYMBALTA [Concomitant]
     Active Substance: DULOXETINE HYDROCHLORIDE
     Indication: NEURALGIA
  4. COTELLIC [Suspect]
     Active Substance: COBIMETINIB
     Dosage: 40MG QD ? 21 DAYS ON ? 7 DAYS OFF ? (1ST DOSE REDUCTION ? C2D1 ? LOSS OF APPETITE AND FATIGUE)
     Route: 048
     Dates: start: 20201222, end: 20210119
  5. RITALIN [Concomitant]
     Active Substance: METHYLPHENIDATE HYDROCHLORIDE
     Indication: FATIGUE
  6. FLOMAX [Concomitant]
     Active Substance: TAMSULOSIN HYDROCHLORIDE
     Indication: BENIGN PROSTATIC HYPERPLASIA
  7. PROTONIX [Concomitant]
     Active Substance: PANTOPRAZOLE SODIUM
  8. COTELLIC [Suspect]
     Active Substance: COBIMETINIB
     Dosage: 20MG QD ? 21 DAYS ON ? 7 DAYS OFF ? (2ND DOSE REDUCTION ? C4D1 ? ELEVATEDE ALK PHOS AND LFTS)
     Route: 048
     Dates: start: 20210216, end: 20210315
  9. ZELBORAF [Suspect]
     Active Substance: VEMURAFENIB
     Indication: PANCREATIC CARCINOMA
     Dosage: FOR 28 DAYS
     Route: 048
     Dates: start: 20201222, end: 20210119
  10. ZELBORAF [Suspect]
     Active Substance: VEMURAFENIB
     Dosage: 1440MG TOTAL DOSE (720MG BID) X 28 DAYS (DOSE HOLD ? IF RESUMED IT WILL BE REDUCED TO 480MG)
     Route: 048
     Dates: start: 20210216, end: 20210315
  11. DILAUDID [Concomitant]
     Active Substance: HYDROMORPHONE HYDROCHLORIDE
     Indication: PAIN
     Dosage: Q4H ? PRN

REACTIONS (7)
  - Blood alkaline phosphatase increased [Recovered/Resolved]
  - Rash [Unknown]
  - Alanine aminotransferase increased [Recovered/Resolved]
  - Off label use [Unknown]
  - Aspartate aminotransferase increased [Recovered/Resolved]
  - Liver function test increased [Unknown]
  - Blood bilirubin increased [Recovered/Resolved]

NARRATIVE: CASE EVENT DATE: 20210119
